FAERS Safety Report 5199673-8 (Version None)
Quarter: 2007Q1

REPORT INFORMATION
  Report Type: 
  Country: None (occurrence: None)
  Receive Date: 20070103
  Receipt Date: 20070103
  Transmission Date: 20070707
  Serious: Yes (Hospitalization)
  Sender: FDA-Public Use
  Company Number: None

PATIENT
  Age: 75 Year
  Sex: Male

DRUGS (7)
  1. ALTEPLASE TISSUE PLASMINOGEN ACTIVATOR [Suspect]
     Indication: CEREBROVASCULAR ACCIDENT
     Dosage: UNKNOWN
     Dates: start: 20060104, end: 20060105
  2. ASPIRIN [Concomitant]
  3. ACTONEL [Concomitant]
  4. NIFEDIPINE [Concomitant]
  5. ZETIA [Concomitant]
  6. ATORVASTATIN CALCIUM [Concomitant]
  7. ATENOLOL [Concomitant]

REACTIONS (1)
  - CEREBRAL HAEMORRHAGE [None]
